FAERS Safety Report 17246558 (Version 1)
Quarter: 2019Q4

REPORT INFORMATION
  Report Type: Spontaneous
  Country: US (occurrence: US)
  Receive Date: 20191213
  Receipt Date: 20191213
  Transmission Date: 20200122
  Serious: No
  Sender: FDA-Public Use
  Company Number: None

PATIENT
  Age: 34 Year
  Sex: Male
  Weight: 140 kg

DRUGS (1)
  1. SLEEP AID MAXIMUM STRENGTH [Suspect]
     Active Substance: DIPHENHYDRAMINE HYDROCHLORIDE
     Indication: INSOMNIA
     Route: 048
     Dates: start: 20191209, end: 20191210

REACTIONS (9)
  - Swollen tongue [None]
  - Oral contusion [None]
  - Gait inability [None]
  - Product label issue [None]
  - Myalgia [None]
  - Tongue biting [None]
  - Eating disorder [None]
  - Muscle spasms [None]
  - Intentional overdose [None]

NARRATIVE: CASE EVENT DATE: 20191210
